FAERS Safety Report 11174463 (Version 6)
Quarter: 2015Q4

REPORT INFORMATION
  Report Type: Spontaneous
  Country: US (occurrence: US)
  Receive Date: 20150609
  Receipt Date: 20151012
  Transmission Date: 20160304
  Serious: Yes (Hospitalization, Other)
  Sender: FDA-Public Use
  Company Number: US-PFIZER INC-2015186605

PATIENT
  Age: 48 Year
  Sex: Female

DRUGS (18)
  1. LYRICA [Suspect]
     Active Substance: PREGABALIN
     Indication: NERVE INJURY
     Dosage: 50 MG, 3X/DAY
     Dates: start: 201311
  2. ARMOUR THYROID [Concomitant]
     Active Substance: THYROID, PORCINE\THYROID, UNSPECIFIED
     Indication: HYPERTHYROIDISM
     Dosage: 60 MG, 1X/DAY
     Dates: start: 2008
  3. KELP [Concomitant]
     Active Substance: KELP
     Indication: BLOOD IRON ABNORMAL
     Dosage: 150 ?G, 1X/DAY
     Dates: start: 2012
  4. D3 [Concomitant]
     Active Substance: 25-HYDROXYCHOLECALCIFEROL, 5-TRANS-
     Indication: SUPPLEMENTATION THERAPY
     Dosage: 2000 IU, DAILY
     Dates: start: 2013
  5. LYRICA [Suspect]
     Active Substance: PREGABALIN
     Dosage: 50 MG, 3X/DAY
     Dates: start: 201312
  6. FLEXERIL [Concomitant]
     Active Substance: CYCLOBENZAPRINE HYDROCHLORIDE
     Indication: MUSCLE RELAXANT THERAPY
     Dosage: 10MG 1 TAB THREE TIMES A DAY AS NEEDED FOR MUSCLE RELAXANT
  7. OXYCODONE [Concomitant]
     Active Substance: OXYCODONE
     Dosage: 5/325MG 1 TAB EVERY 4 HOURS AS NEEDED
     Dates: start: 2014
  8. KRILL OIL [Concomitant]
     Active Substance: DIETARY SUPPLEMENT
     Indication: MUSCLE SPASMS
     Dosage: UNK UNK, 2X/DAY(300MG ONE IN THE MORNING AND 2 AT NIGHT)
     Dates: start: 2009
  9. CINNAMON. [Concomitant]
     Active Substance: CINNAMON
     Dosage: 500 MG, UNK
  10. FOLIC ACID. [Concomitant]
     Active Substance: FOLIC ACID
     Dosage: 800 ?G, 1X/DAY (2 PILLS, 800MCG ONCE DAILY)
     Dates: start: 2012
  11. PERCOCET [Concomitant]
     Active Substance: ACETAMINOPHEN\OXYCODONE HYDROCHLORIDE
     Dosage: 1 DF, EVERY 4 HRS (AS NEEDED) (OXYCODONE HYDROCHLORIDE- 5MG- PARACETAMOL- 325MG)
  12. COCONUT OIL [Concomitant]
     Active Substance: COCONUT OIL
     Dosage: 4 DF, DAILY (4000MG/4GMS)
     Dates: start: 2014
  13. LYRICA [Suspect]
     Active Substance: PREGABALIN
     Dosage: 50 MG, 3X/DAY
     Dates: start: 201507
  14. PREMARIN [Concomitant]
     Active Substance: ESTROGENS, CONJUGATED
     Indication: HORMONE REPLACEMENT THERAPY
     Dosage: 0.9 MG, 1X/DAY
     Dates: start: 2012
  15. XANAX [Concomitant]
     Active Substance: ALPRAZOLAM
     Indication: ANXIETY
     Dosage: 0.5MG 4 TIMES A DAY AS NEEDED
  16. FLEXERIL [Concomitant]
     Active Substance: CYCLOBENZAPRINE HYDROCHLORIDE
     Dosage: 10 MG, 3X/DAY
     Dates: start: 2010
  17. XANAX [Concomitant]
     Active Substance: ALPRAZOLAM
     Dosage: 0.5 MG, 4X/DAY
     Dates: start: 2011
  18. CHROMIUM [Concomitant]
     Active Substance: CHROMIC CHLORIDE\CHROMIUM
     Indication: BLOOD GLUCOSE DECREASED
     Dosage: 2000 MG, 1X/DAY (1000MG 2 TABS ONCE DAILY)
     Dates: start: 2012

REACTIONS (4)
  - Headache [Recovered/Resolved]
  - Back disorder [Not Recovered/Not Resolved]
  - Diarrhoea [Recovered/Resolved]
  - Nausea [Recovered/Resolved]

NARRATIVE: CASE EVENT DATE: 20140930
